FAERS Safety Report 17487714 (Version 2)
Quarter: 2020Q1

REPORT INFORMATION
  Report Type: Spontaneous
  Country: JP (occurrence: JP)
  Receive Date: 20200303
  Receipt Date: 20200324
  Transmission Date: 20200409
  Serious: Yes (Hospitalization)
  Sender: FDA-Public Use
  Company Number: JP-PFIZER INC-2020046569

PATIENT
  Age: 74 Year
  Sex: Male
  Weight: 50 kg

DRUGS (10)
  1. FUNGUARD [Concomitant]
     Active Substance: MICAFUNGIN SODIUM
     Dosage: 50 MG, 1X/DAY
     Route: 042
     Dates: start: 20200121, end: 20200125
  2. BISOPROLOL FUMARATE. [Concomitant]
     Active Substance: BISOPROLOL FUMARATE
     Dosage: 1 DF, 1X/DAY (STRENGTH: 2.5)
     Route: 048
  3. BACTRAMIN [Concomitant]
     Active Substance: SULFAMETHOXAZOLE\TRIMETHOPRIM
     Dosage: 2 DF 3 TIMES WEEKLY
     Route: 048
  4. RITUXIMAB. [Concomitant]
     Active Substance: RITUXIMAB
     Dosage: 600 MG, 1X/DAY
     Route: 042
     Dates: start: 20200115, end: 20200115
  5. ENDOXAN [CYCLOPHOSPHAMIDE] [Concomitant]
     Active Substance: CYCLOPHOSPHAMIDE
     Dosage: 950 MG, 1X/DAY
     Route: 042
     Dates: start: 20200116, end: 20200116
  6. FILGRASTIM [Concomitant]
     Active Substance: FILGRASTIM
     Dosage: 75 UG, 1X/DAY
     Route: 058
     Dates: start: 20200120, end: 20200127
  7. VYNDAQEL [Suspect]
     Active Substance: TAFAMIDIS MEGLUMINE
     Indication: CARDIAC AMYLOIDOSIS
     Dosage: 80 MG, 1X/DAY
     Route: 048
     Dates: start: 20190508, end: 20200108
  8. ENDOXAN [CYCLOPHOSPHAMIDE] [Concomitant]
     Active Substance: CYCLOPHOSPHAMIDE
     Dosage: 950 MG, 1X/DAY
     Route: 042
     Dates: start: 20200109, end: 20200109
  9. PREDONINE [PREDNISOLONE ACETATE] [Concomitant]
     Active Substance: PREDNISOLONE ACETATE
     Dosage: 8 DF, 2X/DAY (STRENGTH: 5)
     Route: 048
     Dates: start: 20200108, end: 20200117
  10. ACICLOVIR [Concomitant]
     Active Substance: ACYCLOVIR
     Dosage: 250 MG, 3X/DAY
     Route: 042
     Dates: start: 20200125, end: 20200131

REACTIONS (4)
  - Lymphoma [Unknown]
  - Dysphagia [Not Recovered/Not Resolved]
  - Condition aggravated [Unknown]
  - Decreased appetite [Recovering/Resolving]

NARRATIVE: CASE EVENT DATE: 20200102
